FAERS Safety Report 23773441 (Version 1)
Quarter: 2024Q2

REPORT INFORMATION
  Report Type: Report from Study
  Country: PA (occurrence: PA)
  Receive Date: 20240423
  Receipt Date: 20240423
  Transmission Date: 20240715
  Serious: Yes (Other)
  Sender: FDA-Public Use
  Company Number: PA-002147023-NVSC2024PA067509

PATIENT
  Age: 23 Year
  Sex: Male
  Weight: 74.83 kg

DRUGS (2)
  1. GILENYA [Suspect]
     Active Substance: FINGOLIMOD HYDROCHLORIDE
     Indication: Multiple sclerosis
     Dosage: 0.5 MG, QD
     Route: 048
     Dates: start: 20191002, end: 20240130
  2. OFATUMUMAB [Concomitant]
     Active Substance: OFATUMUMAB
     Indication: Product used for unknown indication
     Dosage: UNK
     Route: 065
     Dates: start: 20240401

REACTIONS (3)
  - Feeling abnormal [Not Recovered/Not Resolved]
  - Multiple sclerosis [Unknown]
  - Inflammation [Unknown]

NARRATIVE: CASE EVENT DATE: 20230901
